FAERS Safety Report 9976678 (Version 1)
Quarter: 2014Q1

REPORT INFORMATION
  Report Type: Report from Study
  Country: US (occurrence: US)
  Receive Date: 20140306
  Receipt Date: 20140306
  Transmission Date: 20141002
  Serious: No
  Sender: FDA-Public Use
  Company Number: US-ABBVIE-13P-163-1165716-00

PATIENT
  Age: 77 Year
  Sex: Male

DRUGS (15)
  1. HUMIRA [Suspect]
     Indication: RHEUMATOID ARTHRITIS
  2. PLAQUENIL [Concomitant]
     Indication: RHEUMATOID ARTHRITIS
  3. TOPROL [Concomitant]
     Indication: ATRIAL FIBRILLATION
  4. SYNTHROID [Concomitant]
     Indication: HYPOTHYROIDISM
  5. PRILOSEC [Concomitant]
     Indication: PRODUCT USED FOR UNKNOWN INDICATION
  6. FOLBEE [Concomitant]
     Indication: PRODUCT USED FOR UNKNOWN INDICATION
  7. TROSCAR [Concomitant]
     Indication: PROSTATIC DISORDER
  8. FLOMAX [Concomitant]
     Indication: PROSTATIC DISORDER
  9. VITAMIN D [Concomitant]
     Indication: PRODUCT USED FOR UNKNOWN INDICATION
  10. FISH OIL [Concomitant]
     Indication: PRODUCT USED FOR UNKNOWN INDICATION
  11. SERTRALINE [Concomitant]
     Indication: DEPRESSION
     Dosage: Q PM
  12. ACIDOPHILUS [Concomitant]
     Indication: PRODUCT USED FOR UNKNOWN INDICATION
  13. TYLENOL [Concomitant]
     Indication: PRODUCT USED FOR UNKNOWN INDICATION
  14. NEURONTIN [Concomitant]
     Indication: HYPOAESTHESIA
  15. MIRALAX [Concomitant]
     Indication: PRODUCT USED FOR UNKNOWN INDICATION

REACTIONS (2)
  - Injection site mass [Unknown]
  - Injection site bruising [Unknown]
